FAERS Safety Report 21466441 (Version 2)
Quarter: 2023Q2

REPORT INFORMATION
  Report Type: Report from Study
  Country: US (occurrence: US)
  Receive Date: 20221017
  Receipt Date: 20230523
  Transmission Date: 20230722
  Serious: No
  Sender: FDA-Public Use
  Company Number: US-BRISTOL-MYERS SQUIBB COMPANY-2022-121640

PATIENT
  Age: 80 Year
  Sex: Female
  Weight: 65.77 kg

DRUGS (1)
  1. ORENCIA [Suspect]
     Active Substance: ABATACEPT
     Indication: Rheumatoid arthritis
     Dosage: FREQ: EVERY 4 WEEKS
     Route: 042

REACTIONS (5)
  - Urinary tract infection [Unknown]
  - Pain [Unknown]
  - Burning sensation [Unknown]
  - Weight decreased [Unknown]
  - Malaise [Unknown]
